FAERS Safety Report 8784140 (Version 1)
Quarter: 2012Q4

REPORT INFORMATION
  Report Type: 
  Country: US (occurrence: None)
  Receive Date: 20120906
  Receipt Date: 20120906
  Transmission Date: 20130627
  Serious: Yes (Hospitalization)
  Sender: FDA-Public Use
  Company Number: None

PATIENT
  Sex: Female
  Weight: 67.5 kg

DRUGS (5)
  1. CYCLOPHOSPHAMIDE [Suspect]
  2. DOXORUBICIN HYDROCHLORIDE [Suspect]
  3. ETOPOSIDE [Suspect]
  4. VINCRISTINE SULFATE [Suspect]
  5. RITUXIMAB [Suspect]
     Dosage: DA-EPOCH-R cycle 1 at dose level 1

REACTIONS (2)
  - Leukopenia [None]
  - Neutropenia [None]
